FAERS Safety Report 5735859-9 (Version None)
Quarter: 2008Q2

REPORT INFORMATION
  Report Type: 
  Country: None (occurrence: None)
  Receive Date: 20080513
  Receipt Date: 20080506
  Transmission Date: 20081010
  Serious: Yes (Death, Life-Threatening, Other)
  Sender: FDA-Public Use
  Company Number: FR-ELI_LILLY_AND_COMPANY-FR200805000923

PATIENT
  Sex: Male

DRUGS (5)
  1. GEMZAR [Suspect]
     Indication: LUNG CANCER METASTATIC
     Dosage: 2450 MG, ON DAY 1
     Route: 042
     Dates: start: 20080201, end: 20080201
  2. GEMZAR [Suspect]
     Dosage: 2430 MG, ON DAY 8
     Route: 042
     Dates: start: 20080208, end: 20080208
  3. CISPLATIN [Concomitant]
     Indication: LUNG CANCER METASTATIC
     Dosage: 157 MG, UNKNOWN
     Route: 042
     Dates: start: 20080201, end: 20080201
  4. AVASTIN [Concomitant]
     Indication: LUNG CANCER METASTATIC
     Dosage: 1.2 G, ONE INTAKE
     Route: 042
     Dates: start: 20080201, end: 20080201
  5. LORAZEPAM [Concomitant]

REACTIONS (7)
  - ASTHENIA [None]
  - ATRIAL FIBRILLATION [None]
  - CAPILLARY PERMEABILITY INCREASED [None]
  - HYPOGLYCAEMIA [None]
  - INSOMNIA [None]
  - RENAL FAILURE ACUTE [None]
  - RHABDOMYOLYSIS [None]
